FAERS Safety Report 18888584 (Version 1)
Quarter: 2021Q1

REPORT INFORMATION
  Report Type: Spontaneous
  Country: US (occurrence: US)
  Receive Date: 20210213
  Receipt Date: 20210213
  Transmission Date: 20210420
  Serious: No
  Sender: FDA-Public Use
  Company Number: US-SA-2021SA044946

PATIENT

DRUGS (2)
  1. ALPROLIX [Suspect]
     Active Substance: EFTRENONACOG ALFA
  2. ALPROLIX [Suspect]
     Active Substance: EFTRENONACOG ALFA

REACTIONS (1)
  - Factor IX inhibition [Unknown]
